FAERS Safety Report 9747646 (Version 1)
Quarter: 2013Q4

REPORT INFORMATION
  Report Type: Spontaneous
  Country: US (occurrence: None)
  Receive Date: 20131211
  Receipt Date: 20131211
  Transmission Date: 20140711
  Serious: No
  Sender: FDA-Public Use
  Company Number: None

PATIENT
  Age: 47 None
  Sex: Female

DRUGS (1)
  1. NAPROXEN [Suspect]
     Indication: PAIN
     Dosage: 30 MONTH MOUTH
     Route: 048
     Dates: start: 20040913, end: 2009

REACTIONS (1)
  - Renal disorder [None]
